FAERS Safety Report 23534889 (Version 1)
Quarter: 2024Q1

REPORT INFORMATION
  Report Type: Report from Study
  Country: NL (occurrence: NL)
  Receive Date: 20240217
  Receipt Date: 20240217
  Transmission Date: 20240410
  Serious: Yes (Other)
  Sender: FDA-Public Use
  Company Number: NL-SANDOZ-SDZ2024NL014314

PATIENT
  Sex: Female

DRUGS (1)
  1. ACLASTA [Suspect]
     Active Substance: ZOLEDRONIC ACID
     Indication: Osteoporosis
     Dosage: 5 MG, Q12MO
     Route: 042
     Dates: start: 20231130

REACTIONS (5)
  - Hypothermia [Recovered/Resolved]
  - Dysuria [Recovered/Resolved]
  - Urine abnormality [Recovered/Resolved]
  - Renal pain [Recovered/Resolved]
  - Influenza like illness [Recovered/Resolved]
